FAERS Safety Report 4550013-4 (Version None)
Quarter: 2005Q1

REPORT INFORMATION
  Report Type: 
  Country: None (occurrence: None)
  Receive Date: 20050111
  Receipt Date: 20050111
  Transmission Date: 20050727
  Serious: Yes (Life-Threatening, Hospitalization)
  Sender: FDA-Public Use
  Company Number: None

PATIENT
  Age: 55 Year
  Sex: Female
  Weight: 41.2773 kg

DRUGS (1)
  1. ARICEPT [Suspect]
     Dosage: 5 MG PO Q HS
     Route: 048
     Dates: start: 20041228, end: 20050103

REACTIONS (1)
  - RESPIRATORY DISTRESS [None]
